FAERS Safety Report 26044995 (Version 3)
Quarter: 2025Q4

REPORT INFORMATION
  Report Type: Report from Study
  Country: CA (occurrence: CA)
  Receive Date: 20251114
  Receipt Date: 20251222
  Transmission Date: 20260117
  Serious: Yes (Other)
  Sender: CELLTRION
  Company Number: CA-CELLTRION INC.-2025CA039314

PATIENT

DRUGS (1)
  1. OMALIZUMAB [Suspect]
     Active Substance: OMALIZUMAB
     Indication: Asthma
     Dosage: 300MG, EVERY 4 WEEKS
     Route: 058
     Dates: start: 20250613

REACTIONS (6)
  - Lower respiratory tract infection [Not Recovered/Not Resolved]
  - Gastrointestinal disorder [Unknown]
  - Injection site bruising [Unknown]
  - Infection [Unknown]
  - Headache [Unknown]
  - Therapy interrupted [Unknown]
